FAERS Safety Report 7260435-9 (Version None)
Quarter: 2011Q1

REPORT INFORMATION
  Report Type: 
  Country: None (occurrence: None)
  Receive Date: 20110130
  Receipt Date: 20101118
  Transmission Date: 20110831
  Serious: No
  Sender: FDA-Public Use
  Company Number: US-ABBOTT-10P-163-0686703-00

PATIENT
  Sex: Female
  Weight: 71.732 kg

DRUGS (2)
  1. ACTONEL [Concomitant]
     Indication: OSTEOPENIA
  2. HUMIRA [Suspect]
     Indication: CROHN'S DISEASE
     Dates: start: 20101104

REACTIONS (1)
  - INJECTION SITE PAIN [None]
